FAERS Safety Report 8344000-8 (Version None)
Quarter: 2012Q2

REPORT INFORMATION
  Report Type: 
  Country: None (occurrence: None)
  Receive Date: 20120504
  Receipt Date: 20120418
  Transmission Date: 20120825
  Serious: Yes (Other)
  Sender: FDA-Public Use
  Company Number: 2012P1010198

PATIENT
  Age: 67 Year
  Sex: Male
  Weight: 88.4514 kg

DRUGS (8)
  1. LIPITOR [Concomitant]
  2. CARBAMAZEPINE [Suspect]
     Indication: TRIGEMINAL NEURALGIA
     Dosage: 200 MG;QID;PO 400 MG;BID 1200 MG;QD
     Dates: start: 20120201
  3. CARBAMAZEPINE [Suspect]
     Indication: TRIGEMINAL NEURALGIA
     Dosage: 200 MG;QID;PO 400 MG;BID 1200 MG;QD
     Dates: start: 20091201
  4. CARBAMAZEPINE [Suspect]
     Indication: TRIGEMINAL NEURALGIA
     Dosage: 200 MG;QID;PO 400 MG;BID 1200 MG;QD
     Dates: end: 20120201
  5. ALTACE [Concomitant]
  6. TOPROL-XL [Concomitant]
  7. CRESTOR [Concomitant]
  8. GABAPENTIN [Concomitant]

REACTIONS (1)
  - DRUG EFFECT DECREASED [None]
